FAERS Safety Report 21286376 (Version 1)
Quarter: 2022Q3

REPORT INFORMATION
  Report Type: Spontaneous
  Country: IN (occurrence: IN)
  Receive Date: 20220902
  Receipt Date: 20220902
  Transmission Date: 20221027
  Serious: Yes (Other)
  Sender: FDA-Public Use
  Company Number: IN-TORRENT-00003117

PATIENT
  Age: 30 Year
  Sex: Female

DRUGS (2)
  1. ACYCLOVIR [Suspect]
     Active Substance: ACYCLOVIR
     Indication: Viral keratouveitis
     Dosage: UNKNOWN
     Route: 048
  2. ACETAZOLAMIDE [Suspect]
     Active Substance: ACETAZOLAMIDE
     Indication: Viral keratouveitis
     Dosage: UNKNOWN
     Route: 065

REACTIONS (4)
  - Treatment noncompliance [Unknown]
  - Anterior chamber disorder [Recovered/Resolved]
  - Blister [Unknown]
  - Intraocular pressure increased [Recovered/Resolved]
